FAERS Safety Report 4558541-2 (Version None)
Quarter: 2005Q1

REPORT INFORMATION
  Report Type: 
  Country: None (occurrence: None)
  Receive Date: 20050121
  Receipt Date: 20050114
  Transmission Date: 20050727
  Serious: Yes (Hospitalization)
  Sender: FDA-Public Use
  Company Number: PHNU2005DE00561

PATIENT
  Sex: Male

DRUGS (3)
  1. ZOMETA [Suspect]
     Indication: PROSTATE CANCER METASTATIC
     Dosage: 4 MG, ONCE/SINGLE
     Dates: start: 20041111, end: 20041111
  2. MULTOSIN [Concomitant]
     Route: 048
  3. CASODEX [Concomitant]
     Route: 048
     Dates: start: 20040101

REACTIONS (3)
  - CARDIAC TAMPONADE [None]
  - DYSPNOEA [None]
  - NASOPHARYNGITIS [None]
